FAERS Safety Report 5120694-5 (Version None)
Quarter: 2006Q4

REPORT INFORMATION
  Report Type: 
  Country: None (occurrence: None)
  Receive Date: 20061004
  Receipt Date: 20060911
  Transmission Date: 20070319
  Serious: Yes (Hospitalization)
  Sender: FDA-Public Use
  Company Number: US-BOEHRINGER INGELHEIM PHARMACEUTICALS, INC.-2006-BP-10660BP

PATIENT
  Age: 51 Year
  Sex: Male
  Weight: 53.98 kg

DRUGS (19)
  1. APTIVUS/RITONAVIR CAPSULES [Suspect]
     Indication: HIV INFECTION
     Route: 048
     Dates: start: 20031104
  2. LIPITOR [Concomitant]
     Dates: start: 20050508, end: 20060909
  3. GEMFIBROZIL [Concomitant]
     Dates: start: 20040115, end: 20060909
  4. AMBIEN [Concomitant]
     Dates: start: 19971119, end: 20060909
  5. PAMELOR [Concomitant]
     Dates: start: 20030815, end: 20060909
  6. LORATADINE [Concomitant]
     Dates: start: 20030906, end: 20060909
  7. MANGOSTEIN NUTRITIONAL SUPPLEMENT [Concomitant]
     Dates: start: 20021001, end: 20060909
  8. PROTONIX [Concomitant]
     Dates: start: 20030805, end: 20060909
  9. ATIVAN [Concomitant]
     Dates: start: 20030815, end: 20060909
  10. NORVIR [Concomitant]
     Dates: start: 20031104, end: 20060909
  11. SUSTIVA [Concomitant]
     Dates: start: 20031104, end: 20060909
  12. ZIAGEN [Concomitant]
     Dates: start: 20031104, end: 20060909
  13. FIBERCON [Concomitant]
     Dates: start: 20010523, end: 20060909
  14. POTASSIUM [Concomitant]
     Dates: start: 20031119, end: 20060909
  15. LAMICTAL [Concomitant]
     Dates: start: 20020917, end: 20060909
  16. LOPERAMIDE [Concomitant]
     Dates: start: 20020118, end: 20060909
  17. ASACOL [Concomitant]
     Dates: start: 20021223, end: 20060909
  18. MULTIVITAMIN [Concomitant]
     Dates: start: 20030716, end: 20060909
  19. ATENOLOL [Concomitant]
     Dates: start: 20021223, end: 20060909

REACTIONS (5)
  - BLOOD AMYLASE INCREASED [None]
  - CONSTIPATION [None]
  - HEPATIC FAILURE [None]
  - RENAL FAILURE ACUTE [None]
  - UNRESPONSIVE TO STIMULI [None]
